FAERS Safety Report 9523279 (Version 2)
Quarter: 2013Q3

REPORT INFORMATION
  Report Type: Spontaneous
  Country: JP (occurrence: JP)
  Receive Date: 20130913
  Receipt Date: 20130917
  Transmission Date: 20140515
  Serious: Yes (Other)
  Sender: FDA-Public Use
  Company Number: PHHY2013JP101602

PATIENT
  Age: 91 Year
  Sex: Female

DRUGS (5)
  1. RIVASTIGMIN [Suspect]
     Indication: DEMENTIA ALZHEIMER^S TYPE
     Dosage: 4.5 MG, DAILY
     Route: 062
  2. RIVASTIGMIN [Suspect]
     Dosage: 9 MG, DAILY
     Route: 062
  3. RIVASTIGMIN [Suspect]
     Dosage: 13.5 MG, DAILY
     Route: 062
  4. RIVASTIGMIN [Suspect]
     Dosage: 9 MG, DAILY
     Route: 062
     Dates: end: 2013
  5. RIVASTIGMIN [Suspect]
     Dosage: 13.5 MG, DAILY
     Route: 062
     Dates: start: 2013, end: 201309

REACTIONS (3)
  - Sleep apnoea syndrome [Recovered/Resolved]
  - Cyanosis [Recovered/Resolved]
  - Apallic syndrome [Not Recovered/Not Resolved]
